FAERS Safety Report 9233283 (Version 1)
Quarter: 2013Q2

REPORT INFORMATION
  Report Type: Spontaneous
  Country: US (occurrence: None)
  Receive Date: 20130415
  Receipt Date: 20130415
  Transmission Date: 20140414
  Serious: Yes (Hospitalization)
  Sender: FDA-Public Use
  Company Number: None

PATIENT
  Age: 64 Year
  Sex: Male
  Weight: 81.65 kg

DRUGS (2)
  1. HYDROCODONE POLISTIREX AND CHLORPHENIRAMINE POLISITREX [Suspect]
     Indication: COUGH
     Dosage: 1 TSP/12 HOURS 2X A DAY
     Dates: start: 20130409, end: 20130410
  2. ZYRTEC [Suspect]
     Dates: start: 20130409, end: 20130410

REACTIONS (1)
  - Atrial fibrillation [None]
